FAERS Safety Report 20623388 (Version 1)
Quarter: 2022Q1

REPORT INFORMATION
  Report Type: Spontaneous
  Country: IT (occurrence: IT)
  Receive Date: 20220322
  Receipt Date: 20220322
  Transmission Date: 20220424
  Serious: Yes (Other)
  Sender: FDA-Public Use
  Company Number: IT-ViiV Healthcare Limited-IT2022GSK049672

PATIENT
  Sex: Male

DRUGS (3)
  1. MARAVIROC [Suspect]
     Active Substance: MARAVIROC
     Indication: Antiretroviral therapy
     Dosage: 300 MG, BID
  2. DARUNAVIR\RITONAVIR [Suspect]
     Active Substance: DARUNAVIR\RITONAVIR
     Indication: Antiretroviral therapy
     Dosage: UNK, BID
  3. ENFUVIRTIDE [Suspect]
     Active Substance: ENFUVIRTIDE
     Indication: Antiretroviral therapy
     Dosage: 90 MG, BID
     Route: 042

REACTIONS (5)
  - Pathogen resistance [Unknown]
  - Viral mutation identified [Unknown]
  - Virologic failure [Unknown]
  - Drug resistance [Unknown]
  - Drug ineffective [Unknown]
